FAERS Safety Report 16280540 (Version 1)
Quarter: 2019Q2

REPORT INFORMATION
  Report Type: Spontaneous
  Country: US (occurrence: US)
  Receive Date: 20190507
  Receipt Date: 20190507
  Transmission Date: 20190711
  Serious: No
  Sender: FDA-Public Use
  Company Number: US-MTPC-MTDA2019-0049558

PATIENT

DRUGS (2)
  1. RADICAVA [Suspect]
     Active Substance: EDARAVONE
     Indication: AMYOTROPHIC LATERAL SCLEROSIS
     Dosage: 60 MG OVER 60 MIN, QD 14 DAYS FOLLOWED BY 2 WEEK DRUG FREE PERIOD
     Route: 042
  2. RADICAVA [Suspect]
     Active Substance: EDARAVONE
     Dosage: 60 MG OVER 60 MIN, QD 10 DAYS OF 14 DAYS FOLLOWED BY 2 WEEK DRUG FREE PERIOD
     Route: 042

REACTIONS (1)
  - Dysgraphia [Unknown]
